FAERS Safety Report 15797617 (Version 1)
Quarter: 2019Q1

REPORT INFORMATION
  Report Type: Spontaneous
  Country: US (occurrence: US)
  Receive Date: 20190108
  Receipt Date: 20190108
  Transmission Date: 20190417
  Serious: Yes (Other)
  Sender: FDA-Public Use
  Company Number: US-BAYER-2019-004211

PATIENT
  Sex: Female

DRUGS (3)
  1. BAYER LOW DOSE [Suspect]
     Active Substance: ASPIRIN
     Indication: ARTHRITIS
     Dosage: 2 DF
     Route: 065
  2. PLAVIX [Concomitant]
     Active Substance: CLOPIDOGREL BISULFATE
     Dosage: UNK
  3. BAYER LOW DOSE [Suspect]
     Active Substance: ASPIRIN
     Indication: ARTHRITIS
     Dosage: 1 DF
     Route: 065

REACTIONS (3)
  - Product use in unapproved indication [Unknown]
  - Off label use [Unknown]
  - Myocardial infarction [Unknown]
